FAERS Safety Report 14366709 (Version 5)
Quarter: 2018Q2

REPORT INFORMATION
  Report Type: Report from Study
  Country: GB (occurrence: GB)
  Receive Date: 20180109
  Receipt Date: 20180511
  Transmission Date: 20180711
  Serious: Yes (Other)
  Sender: FDA-Public Use
  Company Number: GB-JNJFOC-20171208176

PATIENT
  Sex: Male

DRUGS (2)
  1. SIMPONI [Suspect]
     Active Substance: GOLIMUMAB
     Indication: PRODUCT USED FOR UNKNOWN INDICATION
     Route: 058
     Dates: start: 20180228
  2. SIMPONI [Suspect]
     Active Substance: GOLIMUMAB
     Indication: PRODUCT USED FOR UNKNOWN INDICATION
     Route: 058
     Dates: start: 20171129

REACTIONS (16)
  - Peripheral swelling [Recovered/Resolved]
  - Arthropathy [Not Recovered/Not Resolved]
  - Rotator cuff syndrome [Not Recovered/Not Resolved]
  - Lower respiratory tract infection [Recovered/Resolved]
  - Foot operation [Unknown]
  - Gait disturbance [Unknown]
  - Limb discomfort [Not Recovered/Not Resolved]
  - Ear infection [Unknown]
  - Foot deformity [Unknown]
  - Drug ineffective [Not Recovered/Not Resolved]
  - Fatigue [Not Recovered/Not Resolved]
  - Arthralgia [Unknown]
  - Poor quality sleep [Unknown]
  - Joint swelling [Not Recovered/Not Resolved]
  - Adverse drug reaction [Recovered/Resolved]
  - Headache [Unknown]

NARRATIVE: CASE EVENT DATE: 2018
